FAERS Safety Report 10957025 (Version 3)
Quarter: 2015Q3

REPORT INFORMATION
  Report Type: Spontaneous
  Country: US (occurrence: US)
  Receive Date: 20150326
  Receipt Date: 20150701
  Transmission Date: 20151125
  Serious: No
  Sender: FDA-Public Use
  Company Number: US-PFIZER INC-2015099138

PATIENT
  Age: 52 Year
  Sex: Female
  Weight: 58 kg

DRUGS (3)
  1. JUNIOR STRENGTH ADVIL [Suspect]
     Active Substance: IBUPROFEN
     Indication: HEADACHE
  2. JUNIOR STRENGTH ADVIL [Suspect]
     Active Substance: IBUPROFEN
     Indication: ARTHRALGIA
     Dosage: ONLY 1 TAKEN
     Route: 048
     Dates: start: 20150316, end: 20150316
  3. JUNIOR STRENGTH ADVIL [Suspect]
     Active Substance: IBUPROFEN
     Indication: PAIN

REACTIONS (2)
  - Glossodynia [Recovered/Resolved]
  - Throat irritation [Recovered/Resolved]

NARRATIVE: CASE EVENT DATE: 20150316
